FAERS Safety Report 5691943-X (Version None)
Quarter: 2008Q1

REPORT INFORMATION
  Report Type: 
  Country: None (occurrence: None)
  Receive Date: 20080331
  Receipt Date: 20080211
  Transmission Date: 20080703
  Serious: Yes (Hospitalization)
  Sender: FDA-Public Use
  Company Number: 2008000308

PATIENT
  Age: 57 Year
  Sex: Female

DRUGS (9)
  1. ERLOTINIB [Suspect]
     Indication: PANCREATIC CARCINOMA
     Dosage: 100 MG QD ORAL
     Route: 048
     Dates: start: 20070511, end: 20080125
  2. GEMCITABINE [Suspect]
     Indication: PANCREATIC CARCINOMA
     Dosage: 1720 MG/KG, Q4WEEK, INTRAVENOUS
     Route: 042
     Dates: start: 20070511, end: 20080111
  3. OXYCODOONE          (OXYCODONE) [Concomitant]
  4. MORPHINE [Concomitant]
  5. OMEPRAZOLE [Concomitant]
  6. SUCRALFATE      (SUCRALAFATE) [Concomitant]
  7. LOXOPROFEN SODIUM     (LOXOPROFEN SODIUM) [Concomitant]
  8. ITOPRIDE          (ITOPRIDE) [Concomitant]
  9. METOCLOPRAMIDE [Concomitant]

REACTIONS (5)
  - ANOREXIA [None]
  - GASTRITIS [None]
  - INTESTINAL OBSTRUCTION [None]
  - ORAL INTAKE REDUCED [None]
  - RASH [None]
